FAERS Safety Report 9206260 (Version 1)
Quarter: 2013Q2

REPORT INFORMATION
  Report Type: Spontaneous
  Country: US (occurrence: US)
  Receive Date: 20130403
  Receipt Date: 20130403
  Transmission Date: 20140414
  Serious: No
  Sender: FDA-Public Use
  Company Number: US-PFIZER INC-2013102540

PATIENT
  Sex: Female

DRUGS (2)
  1. GLYSET [Suspect]
     Indication: DIABETES MELLITUS
     Dosage: UNK, 3X/DAY
     Route: 048
  2. PRINIVIL [Concomitant]
     Dosage: UNK

REACTIONS (7)
  - Product quality issue [Unknown]
  - Abdominal pain upper [Recovering/Resolving]
  - Abdominal pain [Unknown]
  - Gastrointestinal pain [Unknown]
  - Flatulence [Unknown]
  - Diarrhoea [Unknown]
  - Constipation [Unknown]
